FAERS Safety Report 16384468 (Version 1)
Quarter: 2019Q3

REPORT INFORMATION
  Report Type: Spontaneous
  Country: US (occurrence: US)
  Receive Date: 20190531
  Receipt Date: 20190531
  Transmission Date: 20191004
  Serious: Yes (Other)
  Sender: FDA-Public Use
  Company Number: None

PATIENT
  Age: 71 Year
  Sex: Female
  Weight: 96.75 kg

DRUGS (22)
  1. ASPIRIN LOW DOSE [Concomitant]
     Active Substance: ASPIRIN
  2. OMEPRAZOLE. [Concomitant]
     Active Substance: OMEPRAZOLE
  3. MAGNESIUM [Concomitant]
     Active Substance: MAGNESIUM
  4. MAXALT [Concomitant]
     Active Substance: RIZATRIPTAN BENZOATE
  5. FISH OIL [Concomitant]
     Active Substance: FISH OIL
  6. METROGEL [Concomitant]
     Active Substance: METRONIDAZOLE
  7. SELEMIUM SULFIDE [Concomitant]
  8. FINASTERIDE. [Concomitant]
     Active Substance: FINASTERIDE
  9. XVEGA [Concomitant]
  10. DULOXETINE HCL [Concomitant]
     Active Substance: DULOXETINE HYDROCHLORIDE
  11. MULTIVITAMINS [Concomitant]
     Active Substance: VITAMINS
  12. MIRALAX [Concomitant]
     Active Substance: POLYETHYLENE GLYCOL 3350
  13. RANITIDINE HCL [Concomitant]
     Active Substance: RANITIDINE HYDROCHLORIDE
  14. CETIRIZINE HCL [Concomitant]
     Active Substance: CETIRIZINE HYDROCHLORIDE
  15. BIOTIN [Concomitant]
     Active Substance: BIOTIN
  16. ROSUVASTATIN. [Concomitant]
     Active Substance: ROSUVASTATIN
  17. ATIVAN [Concomitant]
     Active Substance: LORAZEPAM
  18. CLINDAMYCIN HCL [Concomitant]
     Active Substance: CLINDAMYCIN HYDROCHLORIDE
  19. TRAZODONE HYDROCHLORIDE. [Concomitant]
     Active Substance: TRAZODONE HYDROCHLORIDE
  20. AFINITOR [Suspect]
     Active Substance: EVEROLIMUS
     Indication: BREAST CANCER FEMALE
     Route: 048
     Dates: start: 20190110, end: 20190507
  21. VITAMIN D [Concomitant]
     Active Substance: VITAMIN D NOS
  22. GLUCOSAMINE CHONDROITIN MSM [Concomitant]

REACTIONS (1)
  - Disease progression [None]
